APPROVED DRUG PRODUCT: SOTALOL HYDROCHLORIDE
Active Ingredient: SOTALOL HYDROCHLORIDE
Strength: 80MG
Dosage Form/Route: TABLET;ORAL
Application: A207429 | Product #001 | TE Code: AB
Applicant: REGCON HOLDINGS LLC
Approved: Nov 2, 2018 | RLD: No | RS: No | Type: RX